FAERS Safety Report 21899784 (Version 2)
Quarter: 2023Q1

REPORT INFORMATION
  Report Type: Spontaneous
  Country: ES (occurrence: ES)
  Receive Date: 20230123
  Receipt Date: 20230130
  Transmission Date: 20230417
  Serious: No
  Sender: FDA-Public Use
  Company Number: ES-Santen Oy-2023-ESP-000637

PATIENT
  Age: 67 Year
  Sex: Female

DRUGS (1)
  1. CYCLOSPORINE [Suspect]
     Active Substance: CYCLOSPORINE
     Indication: Sjogren^s syndrome
     Dosage: BOTH EYES, ONE DROP AT 10 IN THE MORNING AND ANOTHER AT 10 AT NIGHT
     Route: 047
     Dates: start: 202209

REACTIONS (4)
  - Off label use [Unknown]
  - Prescribed overdose [Unknown]
  - Therapy interrupted [Unknown]
  - Product availability issue [Unknown]

NARRATIVE: CASE EVENT DATE: 20220901
